FAERS Safety Report 6180179-4 (Version None)
Quarter: 2009Q2

REPORT INFORMATION
  Report Type: 
  Country: None (occurrence: None)
  Receive Date: 20090505
  Receipt Date: 20090428
  Transmission Date: 20091009
  Serious: Yes (Other)
  Sender: FDA-Public Use
  Company Number: US-JNJCH-2009011717

PATIENT
  Age: 37 Year
  Sex: Male
  Weight: 113.4 kg

DRUGS (1)
  1. ZYRTEC [Suspect]
     Indication: HYPERSENSITIVITY
     Route: 048
     Dates: start: 20090427, end: 20090428

REACTIONS (2)
  - EPISTAXIS [None]
  - HAEMATEMESIS [None]
